FAERS Safety Report 8480691-9 (Version None)
Quarter: 2012Q3

REPORT INFORMATION
  Report Type: 
  Country: None (occurrence: None)
  Receive Date: 20120702
  Receipt Date: 20120626
  Transmission Date: 20120928
  Serious: No
  Sender: FDA-Public Use
  Company Number: US-PFIZER INC-2012154064

PATIENT
  Sex: Female
  Weight: 72.562 kg

DRUGS (7)
  1. NEURONTIN [Suspect]
     Dosage: UNK, 1X/DAY
     Route: 048
     Dates: start: 20120601
  2. PAXIL CR [Concomitant]
     Dosage: 37.5 MG, 1X/DAY
  3. NORVASC [Concomitant]
     Indication: HYPERTENSION
     Dosage: UNK, 1X/DAY
  4. SYNTHROID [Concomitant]
     Dosage: UNK, 1X/DAY
  5. LITHIUM [Concomitant]
     Dosage: UNK, 1X/DAY
  6. NEURONTIN [Suspect]
     Indication: SLEEP DISORDER
     Dosage: UNK, 1X/DAY
     Route: 048
     Dates: start: 20120607, end: 20120601
  7. KLONOPIN [Concomitant]
     Dosage: 0.25 MG, 1X/DAY

REACTIONS (3)
  - DEPRESSION [None]
  - NERVOUSNESS [None]
  - SOMNOLENCE [None]
